FAERS Safety Report 12320073 (Version 1)
Quarter: 2016Q2

REPORT INFORMATION
  Report Type: Spontaneous
  Country: US (occurrence: US)
  Receive Date: 20160429
  Receipt Date: 20160429
  Transmission Date: 20160815
  Serious: No
  Sender: FDA-Public Use
  Company Number: US-ROCHE-1637551

PATIENT
  Sex: Male

DRUGS (1)
  1. AVASTIN [Suspect]
     Active Substance: BEVACIZUMAB
     Indication: DIABETIC RETINAL OEDEMA
     Dosage: BOTH EYES
     Route: 065
     Dates: end: 201507

REACTIONS (3)
  - Drug effect decreased [Unknown]
  - Retinal disorder [Unknown]
  - Off label use [Unknown]
